FAERS Safety Report 17096556 (Version 1)
Quarter: 2019Q4

REPORT INFORMATION
  Report Type: Spontaneous
  Country: DE (occurrence: DE)
  Receive Date: 20191202
  Receipt Date: 20191202
  Transmission Date: 20200122
  Serious: Yes (Other)
  Sender: FDA-Public Use
  Company Number: DE-TEVA-2019-DE-1143849

PATIENT
  Age: 1 Day
  Sex: Female
  Weight: 2.57 kg

DRUGS (6)
  1. CARBIMAZOLE [Suspect]
     Active Substance: CARBIMAZOLE
     Indication: HYPERTHYROIDISM
     Dosage: 5 [MG/D ]
     Route: 064
     Dates: start: 20180425, end: 20190124
  2. PROGESTAN [Concomitant]
     Active Substance: PROGESTERONE
     Indication: PROPHYLAXIS OF ABORTION
     Dosage: 400 [MG/D (2X 200) ] 2 SEPARATED DOSES
     Route: 064
     Dates: start: 20180528, end: 20181129
  3. LAMOTRIGINE. [Suspect]
     Active Substance: LAMOTRIGINE
     Indication: EPILEPSY
     Dosage: 50 [MG/D (2X25) ] 2 SEPARATED DOSES
     Route: 064
     Dates: start: 20180425, end: 20190124
  4. MOLSIDOMIN 4 GDS [Suspect]
     Active Substance: MOLSIDOMINE
     Indication: CARDIOVASCULAR EVENT PROPHYLAXIS
     Dosage: 4 [MG/D ]
     Route: 064
  5. CLEXANE 40 [Concomitant]
     Indication: THROMBOSIS PROPHYLAXIS
     Dosage: 40 [MG/D ]
     Route: 064
     Dates: start: 20180425, end: 20190124
  6. ELEVIT [Concomitant]
     Active Substance: FOLIC ACID\IRON\MINERALS\VITAMINS
     Indication: PROPHYLAXIS OF NEURAL TUBE DEFECT
     Route: 064

REACTIONS (1)
  - Small for dates baby [Not Recovered/Not Resolved]

NARRATIVE: CASE EVENT DATE: 20190124
